FAERS Safety Report 18482397 (Version 4)
Quarter: 2021Q1

REPORT INFORMATION
  Report Type: Report from Study
  Country: US (occurrence: US)
  Receive Date: 20201109
  Receipt Date: 20210201
  Transmission Date: 20210419
  Serious: Yes (Hospitalization, Other)
  Sender: FDA-Public Use
  Company Number: US-GILEAD-2020-0491789

PATIENT
  Age: 62 Year
  Sex: Male
  Weight: 75 kg

DRUGS (101)
  1. REMDESIVIR. [Suspect]
     Active Substance: REMDESIVIR
     Indication: COVID-19 PNEUMONIA
     Dosage: UNK
     Route: 042
     Dates: start: 20200807
  2. INSULIN LISPRO [Concomitant]
     Active Substance: INSULIN LISPRO
     Indication: HYPERGLYCAEMIA
     Dates: start: 20200812
  3. INSULIN LISPRO [Concomitant]
     Active Substance: INSULIN LISPRO
     Dosage: UNK
     Dates: start: 20200811
  4. ALBUTEROL [SALBUTAMOL] [Concomitant]
     Active Substance: ALBUTEROL
     Dosage: 2 PUFF
     Dates: start: 20020808
  5. ATORVASTATIN [Concomitant]
     Active Substance: ATORVASTATIN
     Indication: HYPERLIPIDAEMIA
     Dosage: 40 MG, QD
     Dates: start: 20200806, end: 20200827
  6. FENOFIBRATE. [Concomitant]
     Active Substance: FENOFIBRATE
     Indication: HYPERTRIGLYCERIDAEMIA
     Dates: start: 20200806, end: 20200816
  7. MUCINEX [Concomitant]
     Active Substance: GUAIFENESIN
     Dosage: 1200 MG, QD
     Dates: start: 20200808
  8. AZITHROMYCIN ANHYDROUS. [Concomitant]
     Active Substance: AZITHROMYCIN ANHYDROUS
     Indication: RESPIRATORY TRACT INFECTION BACTERIAL
     Dosage: 500 MG
     Dates: start: 20200807, end: 20200810
  9. LACTATED RINGERS SOLUTION [Concomitant]
     Active Substance: CALCIUM CHLORIDE\POTASSIUM CHLORIDE\SODIUM CHLORIDE\SODIUM LACTATE
     Dates: start: 20200806, end: 20200819
  10. LACTATED RINGERS SOLUTION [Concomitant]
     Active Substance: CALCIUM CHLORIDE\POTASSIUM CHLORIDE\SODIUM CHLORIDE\SODIUM LACTATE
     Dates: start: 20200819, end: 20200819
  11. GUAIFENESIN. [Concomitant]
     Active Substance: GUAIFENESIN
     Dosage: 200 MG
     Dates: start: 20200808, end: 20200825
  12. HYDROMORPHONE [Concomitant]
     Active Substance: HYDROMORPHONE
     Indication: PAIN
     Dosage: 0.5 MG
     Dates: start: 20200819, end: 20200820
  13. MIDAZOLAM. [Concomitant]
     Active Substance: MIDAZOLAM
     Dosage: 2 MG
     Dates: start: 20200819, end: 20200819
  14. PROPOFOL. [Concomitant]
     Active Substance: PROPOFOL
     Dosage: 200 UG
     Dates: start: 20200819, end: 20200819
  15. OXYGEN. [Concomitant]
     Active Substance: OXYGEN
     Dosage: 20 L/MIN
     Route: 055
     Dates: start: 20200810
  16. IPRATROPIUM [Concomitant]
     Active Substance: IPRATROPIUM
     Indication: COVID-19
     Dates: start: 20200806, end: 20200806
  17. ACETAMINOPHEN. [Concomitant]
     Active Substance: ACETAMINOPHEN
     Indication: PYREXIA
     Dates: start: 20200814
  18. ACETAMINOPHEN. [Concomitant]
     Active Substance: ACETAMINOPHEN
     Indication: MYALGIA
     Dosage: 650 MG
     Dates: start: 20200813, end: 20200821
  19. MUCINEX DM [Concomitant]
     Active Substance: DEXTROMETHORPHAN HYDROBROMIDE\GUAIFENESIN
     Dates: start: 20200808
  20. AZITHROMYCIN ANHYDROUS. [Concomitant]
     Active Substance: AZITHROMYCIN ANHYDROUS
     Dosage: 500 MG
     Dates: start: 20200810, end: 20200810
  21. MEROPENEM. [Concomitant]
     Active Substance: MEROPENEM
     Dosage: 1 G
     Dates: start: 20200815, end: 20200826
  22. MEROPENEM. [Concomitant]
     Active Substance: MEROPENEM
     Dosage: 1 G
     Dates: start: 20200819, end: 20200819
  23. MORPHINE [Concomitant]
     Active Substance: MORPHINE
     Indication: PAIN
     Dosage: 2 MG
     Dates: start: 20200804
  24. ENOXAPARIN [Concomitant]
     Active Substance: ENOXAPARIN
     Dosage: 40 MG
     Dates: start: 20200810, end: 20200820
  25. ENOXAPARIN [Concomitant]
     Active Substance: ENOXAPARIN
     Dosage: 80 MG
     Dates: start: 20200812, end: 20200814
  26. FUROSEMIDE. [Concomitant]
     Active Substance: FUROSEMIDE
     Indication: OEDEMA
  27. LIDOCAINE. [Concomitant]
     Active Substance: LIDOCAINE
     Indication: PAIN
     Dosage: 2 OTHER
     Dates: start: 20200819, end: 20200827
  28. CALCIUM CHLORIDE. [Concomitant]
     Active Substance: CALCIUM CHLORIDE
     Indication: ANAESTHESIA
     Dates: start: 20200819, end: 20200819
  29. NOREPINEPHRINE. [Concomitant]
     Active Substance: NOREPINEPHRINE
     Dates: start: 20200819, end: 20200819
  30. PHENYLEPHRINE [Concomitant]
     Active Substance: PHENYLEPHRINE HYDROCHLORIDE
     Dosage: 100 UG
     Dates: start: 20200819, end: 20200819
  31. SUGAMMADEX [Concomitant]
     Active Substance: SUGAMMADEX
     Dosage: 300 MG
     Dates: start: 20200819, end: 20200819
  32. DEXTROMETHORPHAN?GUAIFENESIN [Concomitant]
     Active Substance: DEXTROMETHORPHAN\GUAIFENESIN
     Indication: COUGH
     Dosage: 10 ML, QD
     Dates: start: 20200808, end: 20200827
  33. OXYGEN. [Concomitant]
     Active Substance: OXYGEN
     Dosage: 55 L/MIN
     Route: 055
     Dates: start: 20200807
  34. OXYGEN. [Concomitant]
     Active Substance: OXYGEN
     Dosage: 1 L/MIN14?AUG?2020, 15?AUG?2020, 17?AUG?2020, 19?
     Route: 055
     Dates: start: 20200818
  35. OXYGEN. [Concomitant]
     Active Substance: OXYGEN
     Dosage: 2 L/MIN13?AUG?2020
     Route: 055
     Dates: start: 20200816
  36. OXYGEN. [Concomitant]
     Active Substance: OXYGEN
     Dosage: 6 L/MIN
     Route: 055
     Dates: start: 20200819
  37. PLACEBO [Suspect]
     Active Substance: UNSPECIFIED INGREDIENT
     Dosage: MOST RECENT DOSE OF PLACEBO MOST RECENT DOSE OF PLACEBO PRIOR TO AE ONSET ON PRIOR TO AE ONSET
     Route: 042
     Dates: start: 20200808
  38. HEPARIN [Concomitant]
     Active Substance: HEPARIN SODIUM
     Indication: THROMBOSIS PROPHYLAXIS
     Dosage: UNK
     Dates: start: 20200814, end: 20200819
  39. CYCLOPENTOLATE. [Concomitant]
     Active Substance: CYCLOPENTOLATE
     Indication: EYE IRRITATION
     Dates: start: 20200806
  40. CYCLOPENTOLATE. [Concomitant]
     Active Substance: CYCLOPENTOLATE
     Indication: IRITIS
     Dosage: 1 GTT DROPS
     Dates: start: 20200806, end: 20200819
  41. ACETAMINOPHEN. [Concomitant]
     Active Substance: ACETAMINOPHEN
     Indication: COVID-19
     Dosage: 1000 MG
     Dates: start: 20200806, end: 20200828
  42. FUROSEMIDE. [Concomitant]
     Active Substance: FUROSEMIDE
     Indication: HYPERTENSION
     Dosage: 20 MG
     Dates: start: 20200808, end: 20200813
  43. KETAMINE [Concomitant]
     Active Substance: KETAMINE
     Dates: start: 20200819, end: 20200819
  44. VECURONIUM [Concomitant]
     Active Substance: VECURONIUM BROMIDE
     Dosage: 2 MG
     Dates: start: 20200819, end: 20200819
  45. OXYGEN. [Concomitant]
     Active Substance: OXYGEN
     Dosage: 12 L/MIN
     Route: 055
     Dates: start: 20200812
  46. ASCORBIC ACID. [Concomitant]
     Active Substance: ASCORBIC ACID
     Indication: VITAMIN SUPPLEMENTATION
     Dates: start: 20200808, end: 20200828
  47. BENZONATATE. [Concomitant]
     Active Substance: BENZONATATE
     Indication: COUGH
     Dates: start: 20200806, end: 20200825
  48. DEXAMETHASONE. [Concomitant]
     Active Substance: DEXAMETHASONE
     Indication: INFLAMMATION
     Dates: start: 20200819, end: 20200819
  49. LOVENOX [Concomitant]
     Active Substance: ENOXAPARIN SODIUM
     Indication: THROMBOSIS PROPHYLAXIS
     Dates: start: 20200810, end: 20200812
  50. PEPCIDIN [Concomitant]
     Dosage: 20 MG
     Dates: start: 20200806, end: 20200816
  51. RAMELTEON [Concomitant]
     Active Substance: RAMELTEON
     Indication: SLEEP DISORDER THERAPY
     Dosage: 8 MG
     Dates: start: 20200814, end: 20200822
  52. ZINC SULFATE. [Concomitant]
     Active Substance: ZINC SULFATE
     Indication: VITAMIN SUPPLEMENTATION
     Dosage: 220 MG, QD
     Dates: start: 20200808, end: 20200828
  53. LACTATED RINGERS SOLUTION [Concomitant]
     Active Substance: CALCIUM CHLORIDE\POTASSIUM CHLORIDE\SODIUM CHLORIDE\SODIUM LACTATE
     Indication: FLUID REPLACEMENT
     Dosage: 1506 ML
     Dates: start: 20200806, end: 20200806
  54. ERTAPENEM. [Concomitant]
     Active Substance: ERTAPENEM SODIUM
     Dosage: 1 G
     Dates: start: 20200814, end: 20200815
  55. INSULIN [Concomitant]
     Active Substance: INSULIN NOS
     Dates: start: 20200819, end: 20200819
  56. ROCURONIUM [Concomitant]
     Active Substance: ROCURONIUM BROMIDE
     Dates: start: 20200819, end: 20200819
  57. POTASSIUM PHOSPHATE [POTASSIUM PHOSPHATE DIBASIC] [Concomitant]
     Dosage: 0.9% NACL 15 MMOL
  58. HEPARIN [Concomitant]
     Active Substance: HEPARIN SODIUM
     Indication: DEEP VEIN THROMBOSIS
  59. FENOFIBRATE. [Concomitant]
     Active Substance: FENOFIBRATE
     Indication: HYPERLIPIDAEMIA
  60. LASIX [Concomitant]
     Active Substance: FUROSEMIDE
     Indication: FLUID OVERLOAD
     Dosage: 40 MG, QD
     Dates: start: 20200810, end: 20200810
  61. LASIX [Concomitant]
     Active Substance: FUROSEMIDE
     Dosage: 40 MG
     Dates: start: 20200809, end: 20200809
  62. LASIX [Concomitant]
     Active Substance: FUROSEMIDE
     Dosage: 20 MG
     Dates: start: 20200808
  63. ROBITUSSIN (GUAIFENESIN) [Concomitant]
     Active Substance: GUAIFENESIN
     Dosage: 200 MG
     Dates: start: 20200808
  64. IOHEXOL [Concomitant]
     Active Substance: IOHEXOL
     Dates: start: 20200806, end: 20200817
  65. BUDESONIDE. [Concomitant]
     Active Substance: BUDESONIDE
     Indication: COVID-19
     Dosage: .25 MG
     Dates: start: 20200806, end: 20200807
  66. HYDROMORPHONE [Concomitant]
     Active Substance: HYDROMORPHONE
     Indication: DIVERTICULITIS
  67. BUPIVICAINE [Concomitant]
     Active Substance: BUPIVACAINE
  68. OXYGEN. [Concomitant]
     Active Substance: OXYGEN
     Dosage: 60 L/MIN
     Route: 055
     Dates: start: 20200808
  69. CEFTRIAXONE. [Concomitant]
     Active Substance: CEFTRIAXONE
     Indication: SEPSIS
     Dosage: 1 G, QD
     Dates: start: 20200809, end: 20200810
  70. ACETAMINOPHEN. [Concomitant]
     Active Substance: ACETAMINOPHEN
     Indication: ANAESTHESIA
     Dates: start: 20200819, end: 20200819
  71. ROBITUSSIN DM [Concomitant]
     Active Substance: DEXTROMETHORPHAN HYDROBROMIDE\GUAIFENESIN
     Indication: COUGH
     Dosage: 10?100 MG/5 ML LIQUID 10 ML
     Dates: start: 20200806
  72. LOVENOX [Concomitant]
     Active Substance: ENOXAPARIN SODIUM
     Dosage: 40 MG
     Dates: start: 20200806, end: 20200810
  73. LOVENOX [Concomitant]
     Active Substance: ENOXAPARIN SODIUM
     Dosage: 80 MG
     Dates: start: 20200812, end: 20200814
  74. PEPCIDIN [Concomitant]
     Indication: GASTROINTESTINAL DISORDER PROPHYLAXIS
     Dates: start: 20200806
  75. BREO ELLIPTA [Concomitant]
     Active Substance: FLUTICASONE FUROATE\VILANTEROL TRIFENATATE
     Route: 055
     Dates: start: 20200808
  76. LASIX [Concomitant]
     Active Substance: FUROSEMIDE
     Dosage: 40 MG, QD
     Dates: start: 20200809, end: 20200810
  77. LEVOTHYROXINE. [Concomitant]
     Active Substance: LEVOTHYROXINE
     Dosage: 125 UG
     Dates: start: 20200807
  78. OFIRMEV [Concomitant]
     Active Substance: ACETAMINOPHEN
     Indication: PYREXIA
     Dates: start: 20200814
  79. MAGNESIUM SULFATE. [Concomitant]
     Active Substance: MAGNESIUM SULFATE
     Indication: ELECTROLYTE IMBALANCE
     Dosage: 2 G
     Dates: start: 20200819, end: 20200819
  80. OXYGEN. [Concomitant]
     Active Substance: OXYGEN
     Dosage: 50 L/MIN08?AUG?2020, 09/AUG/2020
     Route: 055
     Dates: start: 20200810
  81. PLACEBO [Suspect]
     Active Substance: UNSPECIFIED INGREDIENT
     Indication: COVID-19 PNEUMONIA
     Dosage: UNK
     Route: 042
     Dates: start: 20200807
  82. FAMOTIDINE. [Concomitant]
     Active Substance: FAMOTIDINE
     Indication: GASTROINTESTINAL DISORDER PROPHYLAXIS
     Dates: start: 20200806, end: 20200826
  83. INVANZ [Concomitant]
     Active Substance: ERTAPENEM SODIUM
     Indication: SYSTEMIC INFLAMMATORY RESPONSE SYNDROME
     Dosage: 1 G, QD
     Dates: start: 20200814, end: 20200815
  84. LASIX [Concomitant]
     Active Substance: FUROSEMIDE
     Dosage: 20 MG
     Dates: start: 20200813
  85. POLYETHYLENE GLYCOL [MACROGOL] [Concomitant]
     Active Substance: POLYETHYLENE GLYCOLS
     Dosage: 17 G
     Dates: start: 20200813, end: 20200828
  86. LOPERAMIDE [Concomitant]
     Active Substance: LOPERAMIDE
     Indication: DIARRHOEA
     Dosage: 2 MG
     Dates: start: 20200808, end: 20200808
  87. GUAIFENESIN. [Concomitant]
     Active Substance: GUAIFENESIN
     Indication: COUGH
     Dosage: 1200 MG
     Dates: start: 20200808, end: 20200828
  88. LIDOCAINE. [Concomitant]
     Active Substance: LIDOCAINE
     Indication: PELVIC ABSCESS
     Dosage: 5 ML
     Dates: start: 20200819, end: 20200819
  89. ONDANSETRON [Concomitant]
     Active Substance: ONDANSETRON
     Indication: NAUSEA
     Dosage: 4 MG
     Dates: start: 20200815, end: 20200821
  90. ALBUMIN HUMAN [Concomitant]
     Active Substance: ALBUMIN HUMAN
     Indication: ANAESTHESIA
     Dates: start: 20200819, end: 20200819
  91. FENTANYL. [Concomitant]
     Active Substance: FENTANYL
     Dates: start: 20200819, end: 20200819
  92. SUCCINYLCHOLINE [SUXAMETHONIUM] [Concomitant]
     Active Substance: SUCCINYLCHOLINE
     Dates: start: 20200819, end: 20200819
  93. POTASSIUM PHOSPHATE [POTASSIUM PHOSPHATE DIBASIC] [Concomitant]
     Dosage: 20 MMOL IN SODIUM CHLORIDE 0.9%
  94. OXYGEN. [Concomitant]
     Active Substance: OXYGEN
     Dosage: 20 L/MIN
     Route: 055
     Dates: start: 20200811
  95. FAMOTIDINE. [Concomitant]
     Active Substance: FAMOTIDINE
     Dosage: 20 MG
     Dates: start: 20200819, end: 20200819
  96. DEXAMETHASONE. [Concomitant]
     Active Substance: DEXAMETHASONE
     Indication: COVID-19
     Dosage: 6 MG, QD
     Dates: start: 20200806, end: 20200814
  97. LEVOTHYROXINE. [Concomitant]
     Active Substance: LEVOTHYROXINE
     Indication: HYPOTHYROIDISM
     Dates: start: 20200807
  98. OXYGEN. [Concomitant]
     Active Substance: OXYGEN
     Dosage: 3 L/MIN
     Route: 055
     Dates: start: 20200815
  99. OXYGEN. [Concomitant]
     Active Substance: OXYGEN
     Dosage: 4 L/MIN
     Route: 055
     Dates: start: 20200813
  100. OXYGEN. [Concomitant]
     Active Substance: OXYGEN
     Dosage: 14 L/MIN11?AUG?2020
     Route: 055
     Dates: start: 20200812
  101. OXYGEN. [Concomitant]
     Active Substance: OXYGEN
     Dosage: 30 L/MIN
     Route: 055
     Dates: start: 20200810

REACTIONS (1)
  - Diverticular perforation [Recovered/Resolved]

NARRATIVE: CASE EVENT DATE: 20200814
